FAERS Safety Report 9296895 (Version 1)
Quarter: 2013Q2

REPORT INFORMATION
  Report Type: Spontaneous
  Country: US (occurrence: US)
  Receive Date: 20130517
  Receipt Date: 20130517
  Transmission Date: 20140414
  Serious: Yes (Hospitalization, Other)
  Sender: FDA-Public Use
  Company Number: US-MERCK-1305USA009547

PATIENT
  Age: 62 Year
  Sex: Female

DRUGS (4)
  1. JANUVIA [Suspect]
     Indication: DIABETES MELLITUS
     Dosage: UNK
     Route: 048
     Dates: start: 2012
  2. BUMEX [Concomitant]
  3. METFORMIN [Concomitant]
  4. PRINIVIL [Concomitant]
     Route: 048

REACTIONS (2)
  - Pancreatitis [Recovered/Resolved]
  - Pancreatitis [Unknown]
